FAERS Safety Report 6639190-9 (Version None)
Quarter: 2010Q1

REPORT INFORMATION
  Report Type: 
  Country: None (occurrence: None)
  Receive Date: 20100317
  Receipt Date: 20100310
  Transmission Date: 20100710
  Serious: Yes (Death)
  Sender: FDA-Public Use
  Company Number: GB-MERCK-1003GBR00071

PATIENT
  Age: 62 Year
  Sex: Male

DRUGS (10)
  1. EMEND [Suspect]
     Indication: PROPHYLAXIS OF NAUSEA AND VOMITING
     Route: 048
     Dates: start: 20100101
  2. EMEND [Suspect]
     Route: 048
     Dates: start: 20100101
  3. EMEND [Suspect]
     Route: 048
     Dates: start: 20100101
  4. CISPLATIN [Concomitant]
     Route: 065
     Dates: start: 20100114
  5. FLUOROURACIL [Concomitant]
     Route: 065
  6. DOMPERIDONE [Concomitant]
     Route: 065
  7. DEXAMETHASONE [Concomitant]
     Route: 065
  8. FENTANYL [Suspect]
     Route: 061
     Dates: start: 20091203
  9. FENTANYL [Suspect]
     Route: 061
     Dates: start: 20091001, end: 20091203
  10. ONDANSETRON HYDROCHLORIDE [Concomitant]
     Route: 065

REACTIONS (1)
  - DRUG INTERACTION [None]
